FAERS Safety Report 5364281-2 (Version None)
Quarter: 2007Q2

REPORT INFORMATION
  Report Type: 
  Country: None (occurrence: None)
  Receive Date: 20070620
  Receipt Date: 20070615
  Transmission Date: 20071010
  Serious: Yes (Death, Hospitalization)
  Sender: FDA-Public Use
  Company Number: RO-ABBOTT-07P-135-0371657-00

PATIENT
  Age: 38 Year
  Sex: Male
  Weight: 50 kg

DRUGS (7)
  1. KALETRA [Suspect]
     Indication: HIV INFECTION
     Dosage: 133.3MG/33.3MG
     Dates: start: 20051125, end: 20060327
  2. KALETRA [Suspect]
     Dates: start: 20060728
  3. LAMIVUDINE + ZIDOVUDINE [Concomitant]
     Indication: ANTIVIRAL PROPHYLAXIS
     Dates: start: 20051125
  4. EFAVIRENZ [Concomitant]
     Indication: ANTIVIRAL PROPHYLAXIS
     Dates: start: 20060327
  5. LAMIVUDINE [Concomitant]
     Indication: ANTIVIRAL PROPHYLAXIS
     Dates: start: 20060728
  6. LAMIVUDINE [Concomitant]
  7. STAVUDINE [Concomitant]
     Indication: ANTIVIRAL PROPHYLAXIS
     Dates: start: 20060728

REACTIONS (4)
  - ARRHYTHMIA [None]
  - CARDIAC FAILURE [None]
  - PNEUMONIA [None]
  - PULMONARY TUBERCULOSIS [None]
